FAERS Safety Report 14646922 (Version 2)
Quarter: 2018Q3

REPORT INFORMATION
  Report Type: Spontaneous
  Country: FR (occurrence: FR)
  Receive Date: 20180316
  Receipt Date: 20180802
  Transmission Date: 20181010
  Serious: Yes (Hospitalization)
  Sender: FDA-Public Use
  Company Number: FR-MERCK KGAA-2043906

PATIENT
  Age: 73 Year
  Sex: Female
  Weight: 74 kg

DRUGS (1)
  1. NOVOTHYROX [Suspect]
     Active Substance: LEVOTHYROXINE SODIUM
     Indication: AUTOIMMUNE THYROIDITIS
     Dates: end: 20170823

REACTIONS (11)
  - Hyperthyroidism [None]
  - Blood thyroid stimulating hormone decreased [None]
  - Cardiac failure [None]
  - Muscle spasms [Not Recovered/Not Resolved]
  - Circulatory collapse [None]
  - General physical health deterioration [None]
  - Vertigo [Not Recovered/Not Resolved]
  - Atrial fibrillation [None]
  - Syncope [Not Recovered/Not Resolved]
  - Arrhythmia [Not Recovered/Not Resolved]
  - Weight increased [None]

NARRATIVE: CASE EVENT DATE: 20170821
